FAERS Safety Report 9131416 (Version 1)
Quarter: 2013Q1

REPORT INFORMATION
  Report Type: Report from Study
  Country: US (occurrence: US)
  Receive Date: 20130301
  Receipt Date: 20130301
  Transmission Date: 20140127
  Serious: No
  Sender: FDA-Public Use
  Company Number: US-MYLANLABS-2012S1004238

PATIENT
  Age: 17 Year
  Sex: Male
  Weight: 90.72 kg

DRUGS (2)
  1. AMNESTEEM CAPSULES [Suspect]
     Indication: ACNE
     Dates: start: 20111026, end: 20120210
  2. AMNESTEEM CAPSULES [Suspect]
     Indication: ACNE
     Dates: start: 20111026, end: 20120210

REACTIONS (5)
  - Infectious mononucleosis [Not Recovered/Not Resolved]
  - Chapped lips [Not Recovered/Not Resolved]
  - Lip dry [Not Recovered/Not Resolved]
  - Dry skin [Not Recovered/Not Resolved]
  - Pruritus [Not Recovered/Not Resolved]
